FAERS Safety Report 10098084 (Version 1)
Quarter: 2014Q2

REPORT INFORMATION
  Report Type: Spontaneous
  Country: US (occurrence: US)
  Receive Date: 20140423
  Receipt Date: 20140423
  Transmission Date: 20141212
  Serious: No
  Sender: FDA-Public Use
  Company Number: US-009507513-1404USA010967

PATIENT
  Sex: Female

DRUGS (6)
  1. SIMVASTATIN TABLETS, USP [Concomitant]
  2. LOSARTAN POTASSIUM TABLETS [Concomitant]
  3. CARVEDILOL [Concomitant]
  4. CLONAZEPAM [Concomitant]
  5. AZELASTINE HYDROCHLORIDE [Concomitant]
  6. ASMANEX TWISTHALER [Suspect]
     Dosage: 1 INHALAYION TWICE DAILY
     Route: 055
     Dates: start: 201302

REACTIONS (3)
  - Product quality issue [Unknown]
  - Drug dose omission [Unknown]
  - Dizziness [Unknown]
